FAERS Safety Report 21524100 (Version 1)
Quarter: 2022Q4

REPORT INFORMATION
  Report Type: Spontaneous
  Country: FR (occurrence: FR)
  Receive Date: 20221029
  Receipt Date: 20221029
  Transmission Date: 20230113
  Serious: Yes (Hospitalization)
  Sender: FDA-Public Use
  Company Number: None

PATIENT
  Age: 20 Year
  Sex: Female
  Weight: 50.3 kg

DRUGS (6)
  1. CLOZAPINE [Suspect]
     Active Substance: CLOZAPINE
     Indication: Bipolar disorder
     Dosage: UNIT DOSE: 300 MG, FREQUENCY TIME : 1 DAY, DURATION : 1 DAYS
     Route: 065
     Dates: start: 20221005, end: 20221006
  2. CLOZAPINE [Suspect]
     Active Substance: CLOZAPINE
     Dosage: UNIT DOSE: 200 MG, FREQUENCY TIME : 1 DAY, THERAPY END DATE : NOT ASKED
     Route: 065
     Dates: start: 20221006
  3. CLOZAPINE [Suspect]
     Active Substance: CLOZAPINE
     Dosage: UNIT DOSE: 400 MG, FREQUENCY TIME : 1 DAY, DURATION : 148 DAYS
     Route: 065
     Dates: start: 202206, end: 20221004
  4. CLOZAPINE [Suspect]
     Active Substance: CLOZAPINE
     Dosage: UNIT DOSE: 200 MG, FREQUENCY TIME : 1 DAY, DURATION : 1 MONTH
     Route: 065
     Dates: start: 20220519, end: 202206
  5. DIAZEPAM [Concomitant]
     Active Substance: DIAZEPAM
     Indication: Bipolar disorder
     Dates: end: 202209
  6. DIAZEPAM [Concomitant]
     Active Substance: DIAZEPAM
     Dates: start: 20220927

REACTIONS (2)
  - Overdose [Recovering/Resolving]
  - Tonic clonic movements [Recovered/Resolved]

NARRATIVE: CASE EVENT DATE: 20220926
